FAERS Safety Report 15227889 (Version 1)
Quarter: 2018Q3

REPORT INFORMATION
  Report Type: Spontaneous
  Country: US (occurrence: US)
  Receive Date: 20180801
  Receipt Date: 20180801
  Transmission Date: 20181010
  Serious: Yes (Other)
  Sender: FDA-Public Use
  Company Number: US-BAXTER-2018BAX020412

PATIENT
  Age: 50 Year
  Sex: Male

DRUGS (12)
  1. FLUCONAZOLE INJECTION, USP [Suspect]
     Active Substance: FLUCONAZOLE
     Route: 065
  2. CEFAZOLIN [Concomitant]
     Active Substance: CEFAZOLIN
     Indication: SEPTIC ARTHRITIS STREPTOCOCCAL
     Route: 065
  3. RITONAVIR. [Concomitant]
     Active Substance: RITONAVIR
     Indication: SEPTIC ARTHRITIS STREPTOCOCCAL
     Route: 065
  4. FLUCONAZOLE INJECTION, USP [Suspect]
     Active Substance: FLUCONAZOLE
     Indication: ORAL CANDIDIASIS
     Dosage: ON HOSPITAL DAY 8
     Route: 065
  5. DARUNAVIR [Concomitant]
     Active Substance: DARUNAVIR
     Indication: SEPTIC ARTHRITIS STREPTOCOCCAL
     Route: 065
  6. RITONAVIR. [Concomitant]
     Active Substance: RITONAVIR
     Indication: SEPTIC SHOCK
  7. ETRAVIRINE [Concomitant]
     Active Substance: ETRAVIRINE
     Indication: SEPTIC ARTHRITIS STREPTOCOCCAL
     Route: 065
  8. TENOFOVIR [Concomitant]
     Active Substance: TENOFOVIR
     Indication: SEPTIC ARTHRITIS STREPTOCOCCAL
     Route: 065
  9. ETRAVIRINE [Concomitant]
     Active Substance: ETRAVIRINE
     Indication: SEPTIC SHOCK
  10. CEFAZOLIN [Concomitant]
     Active Substance: CEFAZOLIN
     Indication: SEPTIC SHOCK
  11. DARUNAVIR [Concomitant]
     Active Substance: DARUNAVIR
     Indication: SEPTIC SHOCK
  12. TENOFOVIR [Concomitant]
     Active Substance: TENOFOVIR
     Indication: SEPTIC SHOCK

REACTIONS (1)
  - Adrenal suppression [Recovering/Resolving]
